FAERS Safety Report 13048307 (Version 1)
Quarter: 2016Q4

REPORT INFORMATION
  Report Type: Spontaneous
  Country: US (occurrence: US)
  Receive Date: 20161220
  Receipt Date: 20161220
  Transmission Date: 20170207
  Serious: Yes (Other)
  Sender: FDA-Public Use
  Company Number: None

PATIENT
  Age: 73 Year
  Sex: Male
  Weight: 85.5 kg

DRUGS (20)
  1. CYTOMEL [Concomitant]
     Active Substance: LIOTHYRONINE SODIUM
  2. ANDROGEL [Concomitant]
     Active Substance: TESTOSTERONE
  3. LEVITRA [Concomitant]
     Active Substance: VARDENAFIL HYDROCHLORIDE TRIHYDRATE
  4. TRAZODONE [Concomitant]
     Active Substance: TRAZODONE HYDROCHLORIDE
  5. VITAMIN C [Concomitant]
     Active Substance: ASCORBIC ACID
  6. 1-TYROSINE [Concomitant]
  7. SAW PALMETTO [Concomitant]
     Active Substance: SAW PALMETTO
  8. CHRYSIN [Concomitant]
     Active Substance: CHRYSIN
  9. TRAZODONE [Suspect]
     Active Substance: TRAZODONE HYDROCHLORIDE
     Indication: INSOMNIA
     Dosage: ?          QUANTITY:1 TABLET(S);?
     Route: 048
     Dates: start: 20161120, end: 20161122
  10. LEVOTHYROXINE. [Concomitant]
     Active Substance: LEVOTHYROXINE
  11. B VITAMINS [Concomitant]
     Active Substance: CYANOCOBALAMIN\DEXPANTHENOL\NIACINAMIDE\PYRIDOXINE HYDROCHLORIDE\RIBOFLAVIN 5^-PHOSPHATE SODIUM\THIAMINE HYDROCHLORIDE\VITAMIN B COMPLEX
  12. GABA [Concomitant]
     Active Substance: .GAMMA.-AMINOBUTYRIC ACID
  13. VITAMIN E [Concomitant]
     Active Substance: .ALPHA.-TOCOPHEROL
  14. SELENIUM [Concomitant]
     Active Substance: SELENIUM
  15. BROMELAIN [Concomitant]
     Active Substance: BROMELAINS
  16. ALLOPURINOL. [Concomitant]
     Active Substance: ALLOPURINOL
  17. RICE PROTEIN [Concomitant]
  18. MULTI MINERAL LIQUID [Concomitant]
  19. VITAMIN D [Concomitant]
     Active Substance: CHOLECALCIFEROL
  20. MAGNESIUM GLYCINATE [Concomitant]
     Active Substance: MAGNESIUM GLYCINATE

REACTIONS (7)
  - Tremor [None]
  - Hyperhidrosis [None]
  - Chills [None]
  - Decreased activity [None]
  - Anxiety [None]
  - Insomnia [None]
  - Product substitution issue [None]

NARRATIVE: CASE EVENT DATE: 20161121
